FAERS Safety Report 4933626-7 (Version None)
Quarter: 2006Q1

REPORT INFORMATION
  Report Type: 
  Country: None (occurrence: None)
  Receive Date: 20060306
  Receipt Date: 20060222
  Transmission Date: 20060701
  Serious: Yes (Hospitalization)
  Sender: FDA-Public Use
  Company Number: FR-ROCHE-437720

PATIENT
  Age: 90 Year
  Sex: Female
  Weight: 64 kg

DRUGS (4)
  1. CLONAZEPAM [Suspect]
     Indication: DRUG USE FOR UNKNOWN INDICATION
     Route: 048
     Dates: start: 20060106
  2. CLONAZEPAM [Suspect]
     Route: 048
     Dates: start: 20060127, end: 20060204
  3. STILNOX [Suspect]
     Indication: DRUG USE FOR UNKNOWN INDICATION
     Route: 048
     Dates: start: 20060127, end: 20060204
  4. TEGRETOL [Concomitant]
     Indication: DRUG USE FOR UNKNOWN INDICATION
     Dosage: DECREASED TO 200 MG ONCE DAILY ON 14 JANUARY 2006. DRUG REPORTED AS TEGRETOL LP.
     Dates: end: 20060127

REACTIONS (3)
  - ENCEPHALOPATHY [None]
  - RESPIRATORY DISTRESS [None]
  - SOMNOLENCE [None]
